FAERS Safety Report 4326289-5 (Version None)
Quarter: 2004Q1

REPORT INFORMATION
  Report Type: 
  Country: None (occurrence: None)
  Receive Date: 20040324
  Receipt Date: 20040304
  Transmission Date: 20041129
  Serious: Yes (Other)
  Sender: FDA-Public Use
  Company Number: USA040360988

PATIENT
  Age: 61 Year
  Sex: Female

DRUGS (10)
  1. HUMULIN N [Suspect]
     Indication: DIABETES MELLITUS
     Dates: start: 19930101, end: 20030101
  2. HUMALOG [Suspect]
     Indication: DIABETES MELLITUS
     Dates: start: 20030101
  3. LANTUS [Concomitant]
  4. GLUCOTROL XL [Concomitant]
  5. PLAVIX [Concomitant]
  6. FUROSEMIDE [Concomitant]
  7. VERAPAMIL [Concomitant]
  8. METOPROLOL [Concomitant]
  9. AMIODARONE HCL [Concomitant]
  10. NEPHRO-VITE [Concomitant]

REACTIONS (8)
  - BREAST MASS [None]
  - CARDIAC FAILURE CONGESTIVE [None]
  - CARDIAC PACEMAKER INSERTION [None]
  - DIALYSIS [None]
  - HEART RATE DECREASED [None]
  - HEART RATE INCREASED [None]
  - PALPITATIONS [None]
  - RENAL FAILURE [None]
